FAERS Safety Report 8885904 (Version 2)
Quarter: 2012Q4

REPORT INFORMATION
  Report Type: Report from Study
  Country: FR (occurrence: FR)
  Receive Date: 20121102
  Receipt Date: 20121127
  Transmission Date: 20130627
  Serious: Yes (Hospitalization)
  Sender: FDA-Public Use
  Company Number: FR-MPIJNJ-2012-07540

PATIENT

DRUGS (3)
  1. VELCADE [Suspect]
     Indication: MULTIPLE MYELOMA
     Dosage: 1.3 mg/m2, UNK
     Route: 065
     Dates: start: 20120803, end: 20120921
  2. REVLIMID [Suspect]
     Indication: MULTIPLE MYELOMA
     Dosage: 25 mg, UNK
     Route: 065
     Dates: start: 20120803, end: 20120927
  3. DEXAMETHASONE [Suspect]
     Indication: MULTIPLE MYELOMA
     Dosage: 20 mg, UNK
     Route: 065
     Dates: start: 20120803, end: 20120922

REACTIONS (1)
  - Neuropathy peripheral [Not Recovered/Not Resolved]
